FAERS Safety Report 9456938 (Version 2)
Quarter: 2013Q4

REPORT INFORMATION
  Report Type: Spontaneous
  Country: US (occurrence: US)
  Receive Date: 20130814
  Receipt Date: 20131002
  Transmission Date: 20140711
  Serious: Yes (Other)
  Sender: FDA-Public Use
  Company Number: US-B.I. PHARMACEUTICALS,INC./RIDGEFIELD-2013-BI-24261BP

PATIENT
  Age: 72 Year
  Sex: Male
  Weight: 141.97 kg

DRUGS (14)
  1. PRADAXA [Suspect]
     Indication: ATRIAL FIBRILLATION
     Dosage: 150 MG
     Route: 048
     Dates: start: 20130607, end: 20130617
  2. BETA-BLOCKERS [Concomitant]
  3. LIPITOR [Concomitant]
  4. VIT D [Concomitant]
  5. COENZYME Q 10 [Concomitant]
  6. EARLIR [Concomitant]
  7. GLIPIZIDE [Concomitant]
  8. ACTZ [Concomitant]
  9. LISINOPRIL [Concomitant]
  10. MULTIVITAMIN [Concomitant]
  11. FISH OIL [Concomitant]
  12. PROPRANOLOL [Concomitant]
  13. SAW PALMETTO [Concomitant]
  14. DITROPAN [Concomitant]

REACTIONS (2)
  - Rectal cancer [Not Recovered/Not Resolved]
  - Rectal haemorrhage [Recovered/Resolved]
